FAERS Safety Report 19741635 (Version 2)
Quarter: 2021Q3

REPORT INFORMATION
  Report Type: Other
  Country: JP (occurrence: JP)
  Receive Date: 20210825
  Receipt Date: 20210908
  Transmission Date: 20211014
  Serious: Yes (Death, Other)
  Sender: FDA-Public Use
  Company Number: JP-ROCHE-2896967

PATIENT
  Age: 72 Year
  Sex: Male
  Weight: 46.1 kg

DRUGS (5)
  1. ALECENSA [Suspect]
     Active Substance: ALECTINIB HYDROCHLORIDE
     Indication: LUNG ADENOCARCINOMA
     Dosage: 300 MG, TWICE A DAY, RIGHT AFTER BREAKFAST AND SUPPER
     Route: 048
     Dates: start: 20200324, end: 20200912
  2. AZOSEMIDE [Concomitant]
     Active Substance: AZOSEMIDE
     Dosage: A HALF TABLET, ONCE A DAY, RIGHT AFTER BREAKFAST
     Route: 048
     Dates: start: 20200707
  3. MAINTATE [Concomitant]
     Active Substance: BISOPROLOL FUMARATE
     Dosage: ONE TABLET, ONCE A DAY, RIGHT AFTER BREAKFAST
     Route: 048
     Dates: start: 201912
  4. AMLODIPINE [Concomitant]
     Active Substance: AMLODIPINE BESYLATE
     Dosage: ONE TABLET, ONCE A DAY, RIGHT AFTER BREAKFAST
     Route: 048
  5. OLMESARTAN OD [Concomitant]
     Active Substance: OLMESARTAN MEDOXOMIL
     Dosage: ONE TABLET, ONCE A DAY, RIGHT AFTER BREAKFAST
     Route: 048

REACTIONS (6)
  - Dyspnoea [Unknown]
  - Anaemia [Unknown]
  - Prothrombin time prolonged [Unknown]
  - Coagulopathy [Unknown]
  - Pleural effusion [Unknown]
  - Drug-induced liver injury [Fatal]

NARRATIVE: CASE EVENT DATE: 202009
